FAERS Safety Report 24466816 (Version 1)
Quarter: 2024Q4

REPORT INFORMATION
  Report Type: Report from Study
  Country: US (occurrence: US)
  Receive Date: 20241018
  Receipt Date: 20241018
  Transmission Date: 20250114
  Serious: No
  Sender: ROCHE
  Company Number: US-ROCHE-3549213

PATIENT
  Age: 79 Year
  Sex: Male
  Weight: 78.02 kg

DRUGS (9)
  1. XOLAIR [Suspect]
     Active Substance: OMALIZUMAB
     Indication: Idiopathic urticaria
     Dosage: 1 INJECTION IN THE BACK OF EACH ARM?LAST INJECTION WAS TAKEN IN //2023.
     Route: 058
  2. LOSARTAN AND HYDROCHLOROTHIAZIDE [Concomitant]
     Active Substance: HYDROCHLOROTHIAZIDE\LOSARTAN POTASSIUM
     Indication: Hypertension
     Dosage: 50 MG/12.5 MG
     Route: 048
  3. CARVEDILOL [Concomitant]
     Active Substance: CARVEDILOL
     Dosage: TAKEN IN THE MORNING AND AT NIGHT
     Route: 048
  4. AMLODIPINE [Concomitant]
     Active Substance: AMLODIPINE BESYLATE
     Route: 048
  5. ATORVASTATIN [Concomitant]
     Active Substance: ATORVASTATIN
     Route: 048
  6. TAMSULOSIN [Concomitant]
     Active Substance: TAMSULOSIN
  7. BRINZOLAMIDE [Concomitant]
     Active Substance: BRINZOLAMIDE
  8. RESTASIS [Concomitant]
     Active Substance: CYCLOSPORINE
  9. LATANOPROST [Concomitant]
     Active Substance: LATANOPROST

REACTIONS (4)
  - Urticaria [Not Recovered/Not Resolved]
  - Pruritus [Not Recovered/Not Resolved]
  - Swelling [Not Recovered/Not Resolved]
  - Off label use [Unknown]
